FAERS Safety Report 5423913-0 (Version None)
Quarter: 2007Q3

REPORT INFORMATION
  Report Type: 
  Country: None (occurrence: None)
  Receive Date: 20070823
  Receipt Date: 20070814
  Transmission Date: 20080115
  Serious: Yes (Hospitalization)
  Sender: FDA-Public Use
  Company Number: FR-GENENTECH-222816

PATIENT
  Sex: Male

DRUGS (5)
  1. RITUXAN [Suspect]
     Indication: LYMPHOMA
     Dosage: UNK, UNK
     Route: 042
     Dates: start: 20060104
  2. CYCLOPHOSPHAMIDE [Concomitant]
     Indication: LYMPHOMA
     Dates: start: 20060104
  3. DOXORUBICIN HYDROCHLORIDE [Concomitant]
     Indication: LYMPHOMA
     Dates: start: 20060104
  4. VINCRISTINE [Concomitant]
     Indication: LYMPHOMA
     Dates: start: 20060104
  5. PREDNISONE TAB [Concomitant]
     Indication: LYMPHOMA
     Dates: start: 20060104

REACTIONS (1)
  - MYOCARDIAL INFARCTION [None]
